FAERS Safety Report 4605960-1 (Version None)
Quarter: 2005Q1

REPORT INFORMATION
  Report Type: 
  Country: None (occurrence: None)
  Receive Date: 20050311
  Receipt Date: 20050310
  Transmission Date: 20050727
  Serious: Yes (Life-Threatening, Other)
  Sender: FDA-Public Use
  Company Number: CL-GLAXOSMITHKLINE-A0549211A

PATIENT
  Age: 1 Year
  Weight: 10 kg

DRUGS (1)
  1. ZOFRAN [Suspect]
     Indication: VOMITING
     Dosage: 2MG SINGLE DOSE
     Route: 040
     Dates: start: 20050309, end: 20050309

REACTIONS (2)
  - BRADYCARDIA [None]
  - RESPIRATORY DEPRESSION [None]
